FAERS Safety Report 7260464-5 (Version None)
Quarter: 2011Q1

REPORT INFORMATION
  Report Type: 
  Country: None (occurrence: None)
  Receive Date: 20110130
  Receipt Date: 20101119
  Transmission Date: 20110831
  Serious: No
  Sender: FDA-Public Use
  Company Number: US-ABBOTT-10P-163-0686733-00

PATIENT
  Age: 71 Year
  Sex: Female

DRUGS (3)
  1. DIAZIDE [Concomitant]
     Indication: BLOOD PRESSURE
     Dosage: DAILY
     Route: 048
  2. HUMIRA [Suspect]
     Indication: PSORIASIS
     Dates: start: 20100817
  3. TENORMIN [Concomitant]
     Indication: BLOOD PRESSURE
     Dosage: DAILY
     Route: 048

REACTIONS (1)
  - RASH [None]
